FAERS Safety Report 15577103 (Version 2)
Quarter: 2018Q4

REPORT INFORMATION
  Report Type: Spontaneous
  Country: US (occurrence: US)
  Receive Date: 20181101
  Receipt Date: 20181203
  Transmission Date: 20190205
  Serious: No
  Sender: FDA-Public Use
  Company Number: US-ASTRAZENECA-2018SF30842

PATIENT
  Sex: Male

DRUGS (1)
  1. SYMBICORT [Suspect]
     Active Substance: BUDESONIDE\FORMOTEROL FUMARATE DIHYDRATE
     Indication: PULMONARY CONGESTION
     Dosage: 80/4.5MCG, 2 PUFFS IN MORNING AND 2 PUFFS IN EVENING (UNKNOWN) UNKNOWN
     Route: 055

REACTIONS (9)
  - Headache [Recovered/Resolved]
  - Throat tightness [Unknown]
  - Product use in unapproved indication [Unknown]
  - Off label use [Unknown]
  - Peripheral swelling [Unknown]
  - Intentional product misuse [Unknown]
  - Pain [Unknown]
  - Back pain [Unknown]
  - Hypokinesia [Unknown]
